FAERS Safety Report 9916853 (Version 1)
Quarter: 2014Q1

REPORT INFORMATION
  Report Type: Spontaneous
  Country: US (occurrence: US)
  Receive Date: 20140221
  Receipt Date: 20140221
  Transmission Date: 20141002
  Serious: No
  Sender: FDA-Public Use
  Company Number: US-PFIZER INC-2014046342

PATIENT
  Age: 55 Year
  Sex: Female

DRUGS (2)
  1. ADVIL [Suspect]
     Indication: PAIN
     Dosage: UNK, AS NEEDED
     Route: 048
  2. ESTROGEN [Concomitant]
     Dosage: UNK

REACTIONS (1)
  - Diarrhoea [Unknown]
